FAERS Safety Report 9175468 (Version 1)
Quarter: 2013Q1

REPORT INFORMATION
  Report Type: Spontaneous
  Country: FR (occurrence: FR)
  Receive Date: 20130320
  Receipt Date: 20130320
  Transmission Date: 20140127
  Serious: Yes (Hospitalization)
  Sender: FDA-Public Use
  Company Number: FR-ROCHE-1203728

PATIENT
  Age: 62 Year
  Sex: Female

DRUGS (6)
  1. PEGASYS [Suspect]
     Indication: HEPATITIS C
     Route: 058
     Dates: start: 20121027, end: 20130121
  2. COPEGUS [Suspect]
     Indication: HEPATITIS C
     Route: 048
     Dates: start: 20121027, end: 20130121
  3. INCIVO [Suspect]
     Indication: HEPATITIS C
     Route: 048
     Dates: start: 20121027, end: 20130118
  4. SOTALEX [Concomitant]
     Indication: TACHYCARDIA
     Route: 048
  5. EPREX [Concomitant]
     Indication: HAEMATOTOXICITY
     Route: 058
     Dates: start: 20121130
  6. GRANOCYTE 34 [Concomitant]
     Indication: HAEMATOTOXICITY
     Route: 058
     Dates: start: 20121219, end: 20121222

REACTIONS (1)
  - Drug reaction with eosinophilia and systemic symptoms [Recovered/Resolved]
